FAERS Safety Report 6022356-9 (Version None)
Quarter: 2008Q4

REPORT INFORMATION
  Report Type: 
  Country: None (occurrence: None)
  Receive Date: 20081221
  Receipt Date: 20081221
  Transmission Date: 20090506
  Serious: No
  Sender: FDA-Public Use
  Company Number: None

PATIENT
  Age: 54 Year
  Sex: Female
  Weight: 108.8633 kg

DRUGS (1)
  1. CYMBALTA [Suspect]
     Indication: DEPRESSION
     Dates: start: 20050101, end: 20081201

REACTIONS (12)
  - CARDIAC DISORDER [None]
  - CHILLS [None]
  - DISTURBANCE IN ATTENTION [None]
  - DIZZINESS [None]
  - DRUG WITHDRAWAL SYNDROME [None]
  - MALAISE [None]
  - NEUROLOGICAL SYMPTOM [None]
  - PAIN [None]
  - PARAESTHESIA [None]
  - RHINORRHOEA [None]
  - SNEEZING [None]
  - VISUAL IMPAIRMENT [None]
